FAERS Safety Report 25906743 (Version 1)
Quarter: 2025Q4

REPORT INFORMATION
  Report Type: Spontaneous
  Country: GB (occurrence: GB)
  Receive Date: 20251010
  Receipt Date: 20251010
  Transmission Date: 20260118
  Serious: Yes (Hospitalization)
  Sender: PFIZER
  Company Number: None

PATIENT
  Age: 88 Year
  Sex: Female

DRUGS (19)
  1. SPIRONOLACTONE [Suspect]
     Active Substance: SPIRONOLACTONE
     Dosage: 25 MG, 1X/DAY (ONE TO BE TAKEN EACH DAY)
  2. LANSOPRAZOLE [Concomitant]
     Active Substance: LANSOPRAZOLE
     Dosage: 30 MG, 1X/DAY (ONE TO BE TAKEN EACH MORNING)
  3. HYDRALAZINE [Concomitant]
     Active Substance: HYDRALAZINE HYDROCHLORIDE
     Dosage: 25 MG, 2X/DAY (ONE TO BE TAKEN TWICE A DAY)
  4. ISOSORBIDE MONONITRATE [Concomitant]
     Active Substance: ISOSORBIDE MONONITRATE
     Dosage: UNK
  5. ISOSORBIDE MONONITRATE [Concomitant]
     Active Substance: ISOSORBIDE MONONITRATE
     Dosage: UNK (ONE TO BE TAKEN EACH MORNING AND HALF A TABLET AT 6 PM)
  6. SPIRIVA RESPIMAT [Concomitant]
     Active Substance: TIOTROPIUM BROMIDE
     Dosage: UNK, 1X/DAY (SPIRIVA RESPIMAT 2.5 MICROGRAMS/DOSE INHALATION SOLUTION REFILL CARTRIDGE TWO PUFFS TO
     Route: 048
  7. FUROSEMIDE [Concomitant]
     Active Substance: FUROSEMIDE
     Dosage: 20 MG, 1X/DAY (ONE TO BE TAKEN EACH MORNING (TOTAL DOSE 20 MG))
  8. FUROSEMIDE [Concomitant]
     Active Substance: FUROSEMIDE
     Dosage: 40 MG, 2X/DAY (ONE TO BE TAKEN EACH MORNING AND LUNCHTIME)
  9. DAPAGLIFLOZIN [Concomitant]
     Active Substance: DAPAGLIFLOZIN
     Dosage: 10 MG, DAILY (TO BE TAKEN DAILY)
  10. APIXABAN [Concomitant]
     Active Substance: APIXABAN
     Dosage: 5 MG, 2X/DAY (ONE TO BE TAKEN TWICE A DAY)
  11. TIOTROPIUM BROMIDE [Concomitant]
     Active Substance: TIOTROPIUM BROMIDE
     Dosage: UNK
  12. BECLOMETHASONE\FORMOTEROL [Concomitant]
     Active Substance: BECLOMETHASONE\FORMOTEROL
     Dosage: UNK, 2X/DAY (FOSTAIR 200/6 MICROGRAMS/DOSE INHALER TWO PUFFS TO BE INHALED TWICE A DAY)
     Route: 048
  13. CALCIUM CARBONATE\SODIUM ALGINATE\SODIUM BICARBONATE [Concomitant]
     Active Substance: CALCIUM CARBONATE\SODIUM ALGINATE\SODIUM BICARBONATE
     Dosage: UNK (10-20 ML TO BE TAKEN AFTER MEALS AND AT BEDTIME)
  14. ACETAMINOPHEN [Concomitant]
     Active Substance: ACETAMINOPHEN
     Dosage: 500 MG, 4X/DAY (ONE TO BE TAKEN EVERY 4-6 HOURS UP TO FOUR TIMES A DAY)
  15. ALBUTEROL [Concomitant]
     Active Substance: ALBUTEROL
     Dosage: UNK, AS NEEDED (100 MICROGRAMS/DOSE INHALER CFC FREE 1-2 PUFFS FOUR TIMES A DAY AS REQUIRED)
     Route: 048
  16. BECLOMETHASONE DIPROPIONATE [Concomitant]
     Active Substance: BECLOMETHASONE DIPROPIONATE
     Dosage: UNK
  17. NITROGLYCERIN [Concomitant]
     Active Substance: NITROGLYCERIN
     Dosage: UNK (400 MICROGRAMS / DOSE PUMP SUBLINGUAL SPRAY SPRAY ONE OR TWODOSES UNDER TONGUE AND THEN CLOSE M
     Route: 060
  18. FORMOTEROL [Concomitant]
     Active Substance: FORMOTEROL
     Dosage: UNK
  19. CARVEDILOL [Concomitant]
     Active Substance: CARVEDILOL
     Dosage: UNK, 2X/DAY (TWO TO BE TAKEN IN THE MORNING AND ONE AT TEATIME)

REACTIONS (3)
  - Lethargy [Unknown]
  - Dyspnoea [Unknown]
  - Fatigue [Unknown]
